FAERS Safety Report 6820962-2 (Version None)
Quarter: 2010Q3

REPORT INFORMATION
  Report Type: 
  Country: None (occurrence: None)
  Receive Date: 20100707
  Receipt Date: 20070912
  Transmission Date: 20110219
  Serious: No
  Sender: FDA-Public Use
  Company Number: US-PFIZER INC-2007077045

PATIENT
  Sex: Female

DRUGS (6)
  1. ZOLOFT [Suspect]
     Indication: ANXIETY
     Dates: start: 20070912
  2. ZOLOFT [Suspect]
     Indication: DEPRESSION
  3. HYDROCHLOROTHIAZIDE [Concomitant]
  4. VERAPAMIL [Concomitant]
  5. ALL OTHER THERAPEUTIC PRODUCTS [Concomitant]
  6. OTHER RESPIRATORY SYSTEM PRODUCTS [Concomitant]

REACTIONS (1)
  - DIZZINESS [None]
